FAERS Safety Report 23386386 (Version 5)
Quarter: 2025Q1

REPORT INFORMATION
  Report Type: Spontaneous
  Country: DE (occurrence: DE)
  Receive Date: 20240110
  Receipt Date: 20250207
  Transmission Date: 20250408
  Serious: Yes (Hospitalization, Other)
  Sender: SANDOZ
  Company Number: DE-BAXTER-2023BAX039368

PATIENT
  Age: 5 Year
  Sex: Male
  Weight: 19.9 kg

DRUGS (15)
  1. BESPONSA [Suspect]
     Active Substance: INOTUZUMAB OZOGAMICIN
     Indication: B-cell prolymphocytic leukaemia
     Route: 042
     Dates: start: 20231116, end: 20231116
  2. CYCLOPHOSPHAMIDE [Suspect]
     Active Substance: CYCLOPHOSPHAMIDE
     Indication: B-cell prolymphocytic leukaemia
     Route: 042
     Dates: start: 20231207, end: 20231209
  3. CYTARABINE [Suspect]
     Active Substance: CYTARABINE
     Route: 050
     Dates: start: 20231205, end: 20231205
  4. CYTARABINE [Suspect]
     Active Substance: CYTARABINE
     Indication: B-cell prolymphocytic leukaemia
     Dosage: 1620 MG, BID (SECOND REGIMEN)
     Route: 041
     Dates: start: 20231210, end: 20231210
  5. DECADRON (DEXAMETHASONE SODIUM PHOSPHATE) [Suspect]
     Active Substance: DEXAMETHASONE SODIUM PHOSPHATE
     Indication: B-cell prolymphocytic leukaemia
     Dosage: 2 MG, BID
     Route: 048
     Dates: start: 20231205, end: 20231211
  6. METHOTREXATE [Suspect]
     Active Substance: METHOTREXATE
     Indication: B-cell prolymphocytic leukaemia
     Route: 037
     Dates: start: 20231205, end: 20231205
  7. METHOTREXATE [Suspect]
     Active Substance: METHOTREXATE
     Route: 065
     Dates: start: 20231206, end: 20231207
  8. PREDNISOLONE [Suspect]
     Active Substance: PREDNISOLONE
     Indication: B-cell prolymphocytic leukaemia
     Route: 050
     Dates: start: 20231205, end: 20231205
  9. PEGASPARGASE [Suspect]
     Active Substance: PEGASPARGASE
     Indication: B-cell prolymphocytic leukaemia
     Route: 041
     Dates: start: 20231211, end: 20231211
  10. PEGASPARGASE [Suspect]
     Active Substance: PEGASPARGASE
     Route: 041
     Dates: start: 20231211, end: 20231211
  11. VINCRISTINE SULFATE [Suspect]
     Active Substance: VINCRISTINE SULFATE
     Indication: B-cell prolymphocytic leukaemia
     Route: 065
     Dates: start: 20231206, end: 20231211
  12. AMBISOME [Concomitant]
     Active Substance: AMPHOTERICIN B
     Indication: Immunosuppression
     Route: 065
     Dates: start: 20231102
  13. COTRIMOXAZOLE [Concomitant]
     Active Substance: SULFAMETHOXAZOLE\TRIMETHOPRIM
     Indication: Immunosuppression
     Route: 048
     Dates: start: 202311
  14. COTRIMOXAZOLE [Concomitant]
     Active Substance: SULFAMETHOXAZOLE\TRIMETHOPRIM
     Route: 048
  15. Novalgin [Concomitant]
     Indication: Product used for unknown indication
     Route: 048
     Dates: start: 20231208

REACTIONS (3)
  - Mucosal inflammation [Recovered/Resolved]
  - Pyrexia [Recovered/Resolved]
  - Myelosuppression [Unknown]

NARRATIVE: CASE EVENT DATE: 20231214
